FAERS Safety Report 8545758-5 (Version None)
Quarter: 2012Q3

REPORT INFORMATION
  Report Type: 
  Country: None (occurrence: None)
  Receive Date: 20120727
  Receipt Date: 20120725
  Transmission Date: 20120928
  Serious: Yes (Other)
  Sender: FDA-Public Use
  Company Number: DE-PFIZER INC-2012181263

PATIENT
  Sex: Female

DRUGS (1)
  1. EPINEPHRINE [Suspect]
     Dosage: UNK

REACTIONS (3)
  - INJECTION SITE PALLOR [None]
  - ACCIDENTAL EXPOSURE [None]
  - INJECTION SITE PAIN [None]
